FAERS Safety Report 9404186 (Version 1)
Quarter: 2013Q3

REPORT INFORMATION
  Report Type: Spontaneous
  Country: US (occurrence: None)
  Receive Date: 20130716
  Receipt Date: 20130716
  Transmission Date: 20140515
  Serious: Yes (Other)
  Sender: FDA-Public Use
  Company Number: None

PATIENT
  Age: 68 Year
  Sex: Male
  Weight: 84.82 kg

DRUGS (5)
  1. AMITRIPTYLINE [Suspect]
     Indication: MIGRAINE PROPHYLAXIS
     Route: 048
     Dates: start: 199001
  2. TAMSULOSIN [Concomitant]
  3. METAMUCIL [Concomitant]
  4. ASPIRIN [Concomitant]
  5. MULTIVITAMIN [Concomitant]

REACTIONS (4)
  - Somnolence [None]
  - Migraine [None]
  - Condition aggravated [None]
  - Product quality issue [None]
